FAERS Safety Report 10745273 (Version 2)
Quarter: 2015Q2

REPORT INFORMATION
  Report Type: Spontaneous
  Country: US (occurrence: None)
  Receive Date: 20150120
  Receipt Date: 20150420
  Transmission Date: 20150821
  Serious: No
  Sender: FDA-Public Use
  Company Number: AEGR000920

PATIENT
  Age: 69 Year
  Sex: Female
  Weight: 63.5 kg

DRUGS (11)
  1. MICARDIS HCT (HYDROPCHLOROTHIAZIDE, TELMISARTAN) [Concomitant]
  2. RESTASIS (CICLOSPORIN) [Concomitant]
  3. MVI (VITAMINS NOS) [Concomitant]
  4. MAGNESIUM [Concomitant]
     Active Substance: MAGNESIUM
  5. CRESTOR (ROSUVASTATIN CALCIUIM) [Concomitant]
  6. JUXTAPID [Suspect]
     Active Substance: LOMITAPIDE MESYLATE
     Indication: PRODUCT USED FOR UNKNOWN INDICATION
     Route: 048
     Dates: start: 20141001, end: 20150123
  7. ZETIA (IEZETIMIBE) [Concomitant]
  8. JUXTAPID [Suspect]
     Active Substance: LOMITAPIDE MESYLATE
     Indication: TYPE IIA HYPERLIPIDAEMIA
     Route: 048
     Dates: start: 20141001, end: 20150123
  9. ASPIRIN. [Concomitant]
     Active Substance: ASPIRIN
  10. CALCIUM (CALCIUM CARBONATE) [Concomitant]
  11. FISH OIL [Suspect]
     Active Substance: FISH OIL
     Indication: PRODUCT USED FOR UNKNOWN INDICATION

REACTIONS (5)
  - Sleep disorder [None]
  - Dysgeusia [None]
  - Insomnia [None]
  - Constipation [None]
  - Abdominal discomfort [None]

NARRATIVE: CASE EVENT DATE: 2014
